FAERS Safety Report 22009444 (Version 4)
Quarter: 2023Q2

REPORT INFORMATION
  Report Type: Spontaneous
  Country: US (occurrence: US)
  Receive Date: 20230220
  Receipt Date: 20230416
  Transmission Date: 20230721
  Serious: Yes (Other)
  Sender: FDA-Public Use
  Company Number: US-002147023-NVSC2023US033850

PATIENT
  Age: 8 Year
  Sex: Male
  Weight: 25.3 kg

DRUGS (4)
  1. KYMRIAH [Suspect]
     Active Substance: TISAGENLECLEUCEL
     Indication: Acute lymphocytic leukaemia
     Dosage: UNK UNK, ONCE/SINGLE (CELL DOSE)
     Route: 042
     Dates: start: 20211012, end: 20211012
  2. KYMRIAH [Suspect]
     Active Substance: TISAGENLECLEUCEL
     Dosage: 2.8X10E6 CAR POSITIVE VIABLE T-CELLS/KG BODY WEIGHT, ONCE/SINGLE
     Route: 042
     Dates: start: 20220125, end: 20220125
  3. FLUDARABINE [Concomitant]
     Active Substance: FLUDARABINE PHOSPHATE
     Indication: Lymphodepletion
     Dosage: UNK
     Route: 065
  4. CYCLOPHOSPHAMIDE [Concomitant]
     Active Substance: CYCLOPHOSPHAMIDE
     Indication: Lymphodepletion
     Dosage: UNK
     Route: 065

REACTIONS (12)
  - Acute lymphocytic leukaemia [Unknown]
  - Malignant neoplasm progression [Unknown]
  - Post-depletion B-cell recovery [Not Recovered/Not Resolved]
  - Cytokine release syndrome [Unknown]
  - Headache [Recovered/Resolved]
  - Headache [Recovered/Resolved]
  - Hypotension [Unknown]
  - Pyrexia [Unknown]
  - Tachypnoea [Unknown]
  - Bone marrow failure [Unknown]
  - Drug ineffective [Unknown]
  - Off label use [Unknown]

NARRATIVE: CASE EVENT DATE: 20211017
